FAERS Safety Report 6983005-6 (Version None)
Quarter: 2010Q3

REPORT INFORMATION
  Report Type: 
  Country: None (occurrence: None)
  Receive Date: 20100914
  Receipt Date: 20100508
  Transmission Date: 20110219
  Serious: Yes (Other)
  Sender: FDA-Public Use
  Company Number: US-PFIZER INC-2010058779

PATIENT
  Age: 47 Year
  Sex: Male
  Weight: 68.027 kg

DRUGS (8)
  1. LYRICA [Suspect]
     Indication: NEURALGIA
     Dosage: 50 MG, 3X/DAY
     Route: 048
     Dates: start: 20100502, end: 20100505
  2. PRILOSEC [Concomitant]
     Indication: GASTROINTESTINAL DISORDER
     Dosage: 20 MG, 1X/DAY
  3. TERAZOSIN [Concomitant]
     Indication: PROSTATIC DISORDER
     Dosage: 2 MG, 1X/DAY
  4. SIMVASTATIN [Concomitant]
     Indication: BLOOD CHOLESTEROL INCREASED
     Dosage: 10 MG, 1X/DAY
  5. DESVENLAFAXINE [Concomitant]
     Indication: DEPRESSION
     Dosage: 150 MG, 1X/DAY
  6. METOPROLOL [Concomitant]
     Indication: HYPERTENSION
     Dosage: 25 MG, 1X/DAY
  7. ATIVAN [Concomitant]
     Indication: ANXIETY
     Dosage: UNK
  8. OXYCONTIN [Concomitant]
     Dosage: UNK

REACTIONS (6)
  - LOCAL SWELLING [None]
  - LYMPHADENOPATHY [None]
  - MUSCULOSKELETAL STIFFNESS [None]
  - ORAL HERPES [None]
  - PHARYNGEAL OEDEMA [None]
  - SWELLING FACE [None]
